FAERS Safety Report 8756867 (Version 3)
Quarter: 2013Q2

REPORT INFORMATION
  Report Type: Spontaneous
  Country: US (occurrence: US)
  Receive Date: 20120828
  Receipt Date: 20130424
  Transmission Date: 20140414
  Serious: Yes (Hospitalization, Other)
  Sender: FDA-Public Use
  Company Number: US-MERCK-1208USA007494

PATIENT
  Sex: Female
  Weight: 58.5 kg

DRUGS (16)
  1. FOSAMAX [Suspect]
     Indication: OSTEOPOROSIS
     Dosage: 70 MG, QW
     Route: 048
     Dates: start: 200309, end: 200803
  2. FOSAMAX [Suspect]
     Indication: OSTEOPENIA
     Dosage: 70 MG, QW
     Route: 048
     Dates: start: 200807, end: 200910
  3. FOSAMAX [Suspect]
     Dosage: 70 MG, QW
     Route: 048
     Dates: start: 201002, end: 201008
  4. FOSAMAX [Suspect]
     Dosage: 70 MG, QW
     Route: 048
     Dates: start: 201010, end: 201012
  5. ALENDRONATE SODIUM [Suspect]
     Indication: OSTEOPENIA
     Dosage: 70 MG, QW
     Dates: start: 200803, end: 200806
  6. ALENDRONATE SODIUM [Suspect]
     Dosage: 70 MG, QW
     Dates: start: 200910, end: 201002
  7. ALENDRONATE SODIUM [Suspect]
     Dosage: 70 MG,QW
     Dates: start: 201008, end: 201010
  8. LUMIGAN [Concomitant]
     Indication: GLAUCOMA
  9. LIPITOR [Concomitant]
  10. POTASSIUM (UNSPECIFIED) [Concomitant]
  11. HYDROCHLOROTHIAZIDE [Concomitant]
  12. COZAAR [Concomitant]
  13. TOPROL XL TABLETS [Concomitant]
  14. OMEGA-3 MARINE TRIGLYCERIDES [Concomitant]
     Dosage: UNK
     Dates: start: 2002
  15. VITAMIN B (UNSPECIFIED) [Concomitant]
     Dosage: UNK
     Dates: start: 2002
  16. CALCIUM (UNSPECIFIED) [Concomitant]
     Dosage: UNK
     Dates: start: 2002

REACTIONS (7)
  - Femur fracture [Recovered/Resolved]
  - Open reduction of fracture [Recovered/Resolved]
  - Low turnover osteopathy [Unknown]
  - Arthroscopy [Unknown]
  - Glaucoma [Unknown]
  - Blood cholesterol increased [Unknown]
  - Hypertension [Unknown]
